FAERS Safety Report 12815525 (Version 1)
Quarter: 2016Q4

REPORT INFORMATION
  Report Type: Spontaneous
  Country: US (occurrence: US)
  Receive Date: 20161005
  Receipt Date: 20161005
  Transmission Date: 20170207
  Serious: No
  Sender: FDA-Public Use
  Company Number: None

PATIENT
  Age: 61 Year
  Sex: Male

DRUGS (2)
  1. RIBASPHERE [Suspect]
     Active Substance: RIBAVIRIN
     Indication: CHRONIC HEPATITIS C
  2. VIEKIRA PAK [Concomitant]
     Active Substance: DASABUVIR\OMBITASVIR\PARITAPREVIR\RITONAVIR

REACTIONS (2)
  - Abdominal pain upper [None]
  - Hepatic pain [None]

NARRATIVE: CASE EVENT DATE: 20161005
